FAERS Safety Report 4604131-2 (Version None)
Quarter: 2005Q1

REPORT INFORMATION
  Report Type: 
  Country: None (occurrence: None)
  Receive Date: 20050309
  Receipt Date: 20050309
  Transmission Date: 20050727
  Serious: Yes (Hospitalization, Other)
  Sender: FDA-Public Use
  Company Number: None

PATIENT
  Age: 32 Year
  Sex: Female
  Weight: 131.0895 kg

DRUGS (8)
  1. WARFARIN [Suspect]
     Indication: CEREBROVASCULAR ACCIDENT
     Dosage: 5 MG ALT 7.5 MG DAILY
     Dates: start: 20041109
  2. ASPIRIN [Suspect]
     Indication: CEREBROVASCULAR ACCIDENT
     Dosage: 325 MG DAILY PO
     Route: 048
     Dates: start: 20041109
  3. PREVACID [Concomitant]
  4. ZOCOR [Concomitant]
  5. GLUCOPHAGE [Concomitant]
  6. LANTUS, HUMALOG [Concomitant]
  7. TOPAMAX [Concomitant]
  8. FLEXORIL [Concomitant]

REACTIONS (2)
  - REFUSAL OF TREATMENT BY PATIENT [None]
  - VESSEL PUNCTURE SITE HAEMORRHAGE [None]
